FAERS Safety Report 5566508-0 (Version None)
Quarter: 2007Q4

REPORT INFORMATION
  Report Type: 
  Country: None (occurrence: None)
  Receive Date: 20071214
  Receipt Date: 20071130
  Transmission Date: 20080405
  Serious: Yes (Hospitalization, Other)
  Sender: FDA-Public Use
  Company Number: POMP-10918

PATIENT
  Age: 2 Month
  Sex: Male
  Weight: 5.5 kg

DRUGS (10)
  1. MYOZYME [Suspect]
     Indication: GLYCOGEN STORAGE DISEASE TYPE II
     Dosage: 20 MG/KG Q2WKS IV
     Route: 042
     Dates: start: 20060911
  2. MYOZYME [Suspect]
  3. MYOZYME [Suspect]
  4. BUDESONIDE [Concomitant]
  5. XOPENEX [Concomitant]
  6. LANSOPRAZOLE [Concomitant]
  7. DIGOXIN [Concomitant]
  8. PROPRANOLOL [Concomitant]
  9. AMIODARONE HCL [Concomitant]
  10. BENADRYL [Concomitant]

REACTIONS (20)
  - ASTHENIA [None]
  - BLOOD CREATINE PHOSPHOKINASE INCREASED [None]
  - BLOOD CULTURE POSITIVE [None]
  - CANDIDIASIS [None]
  - CARDIAC DISORDER [None]
  - CATHETER RELATED INFECTION [None]
  - CENTRAL LINE INFECTION [None]
  - CLOSTRIDIAL INFECTION [None]
  - ENTEROCOCCAL INFECTION [None]
  - FUNGAEMIA [None]
  - HYPOREFLEXIA [None]
  - LOBAR PNEUMONIA [None]
  - MUSCULAR WEAKNESS [None]
  - NYSTAGMUS [None]
  - PARAINFLUENZAE VIRUS INFECTION [None]
  - PSEUDOMONAS INFECTION [None]
  - RESPIRATORY FAILURE [None]
  - ROTAVIRUS INFECTION [None]
  - STAPHYLOCOCCAL INFECTION [None]
  - SUPRAVENTRICULAR TACHYCARDIA [None]
